FAERS Safety Report 4389107-5 (Version None)
Quarter: 2004Q2

REPORT INFORMATION
  Report Type: 
  Country: None (occurrence: None)
  Receive Date: 20040628
  Receipt Date: 20040618
  Transmission Date: 20050107
  Serious: Yes (Hospitalization)
  Sender: FDA-Public Use
  Company Number: 2004-06-1006

PATIENT
  Age: 48 Year
  Sex: Female

DRUGS (9)
  1. PEG-INTRON [Suspect]
     Indication: HEPATITIS C
     Dosage: 100 MCG QWK SUBCUTANEOUS
     Route: 058
     Dates: start: 20030731, end: 20030922
  2. PEG-INTRON [Suspect]
     Indication: HEPATITIS C
     Dosage: 100 MCG QWK SUBCUTANEOUS
     Route: 058
     Dates: start: 20031005
  3. REBETOL [Suspect]
     Indication: HEPATITIS C
     Dosage: SEE IMAGE
     Route: 048
     Dates: start: 20030731, end: 20030922
  4. EUTHYROX [Concomitant]
  5. KALICOR [Concomitant]
  6. SEROXAT [Concomitant]
  7. SERETIDE  (SALMETEROL / FLUTICASONE PROPIONATE) [Concomitant]
  8. PULMICORT [Concomitant]
  9. AMINOPHYLLINE [Concomitant]

REACTIONS (1)
  - ANAEMIA MACROCYTIC [None]
